FAERS Safety Report 11976742 (Version 8)
Quarter: 2016Q3

REPORT INFORMATION
  Report Type: Report from Study
  Country: IL (occurrence: IL)
  Receive Date: 20160129
  Receipt Date: 20160902
  Transmission Date: 20161109
  Serious: Yes (Hospitalization, Other)
  Sender: FDA-Public Use
  Company Number: IL-ABBVIE-16P-082-1547285-00

PATIENT
  Age: 59 Year
  Sex: Male

DRUGS (7)
  1. DUODOPA [Suspect]
     Active Substance: CARBIDOPA\LEVODOPA
     Indication: PARKINSON^S DISEASE
     Dosage: 3.3 CHANGING DOSAGE DURING THE DAY
     Route: 050
     Dates: start: 20151123
  2. DUODOPA [Suspect]
     Active Substance: CARBIDOPA\LEVODOPA
     Dosage: CD DOSE OF 2.7
     Route: 050
     Dates: start: 20160101
  3. DUODOPA [Suspect]
     Active Substance: CARBIDOPA\LEVODOPA
     Dosage: 4
     Route: 050
  4. DUODOPA [Suspect]
     Active Substance: CARBIDOPA\LEVODOPA
     Dosage: CONTINOUS DOSE DECREASED TO 2.8
     Route: 050
     Dates: start: 201601
  5. DUODOPA [Suspect]
     Active Substance: CARBIDOPA\LEVODOPA
     Dosage: DOSE 2.5
     Route: 050
     Dates: start: 201512
  6. DUODOPA [Suspect]
     Active Substance: CARBIDOPA\LEVODOPA
     Dosage: CD TO BE INCREASED TO 3.3
     Route: 050
     Dates: start: 20151231
  7. DUODOPA [Suspect]
     Active Substance: CARBIDOPA\LEVODOPA
     Route: 050
     Dates: start: 20160212

REACTIONS (12)
  - Anxiety [Unknown]
  - Dyskinesia [Not Recovered/Not Resolved]
  - Condition aggravated [Not Recovered/Not Resolved]
  - Dystonia [Not Recovered/Not Resolved]
  - On and off phenomenon [Recovered/Resolved]
  - Tremor [Unknown]
  - Dyspnoea [Unknown]
  - On and off phenomenon [Unknown]
  - Tremor [Not Recovered/Not Resolved]
  - Drug ineffective [Unknown]
  - Dyskinesia [Recovered/Resolved]
  - Torticollis [Recovering/Resolving]

NARRATIVE: CASE EVENT DATE: 201512
